FAERS Safety Report 5169446-0 (Version None)
Quarter: 2006Q4

REPORT INFORMATION
  Report Type: 
  Country: None (occurrence: None)
  Receive Date: 20061201
  Receipt Date: 20060912
  Transmission Date: 20070319
  Serious: Yes (Other)
  Sender: FDA-Public Use
  Company Number: 2006124401

PATIENT
  Age: 64 Year
  Sex: Male
  Weight: 81.6475 kg

DRUGS (1)
  1. BEXTRA [Suspect]
     Indication: PAIN
     Dosage: 10 MG (10 MG,1 IN 1 D)
     Dates: start: 20040505, end: 20041104

REACTIONS (2)
  - CEREBROVASCULAR ACCIDENT [None]
  - STEVENS-JOHNSON SYNDROME [None]
